FAERS Safety Report 18766733 (Version 1)
Quarter: 2021Q1

REPORT INFORMATION
  Report Type: Spontaneous
  Country: US (occurrence: US)
  Receive Date: 20210120
  Receipt Date: 20210120
  Transmission Date: 20210419
  Serious: Yes (Hospitalization)
  Sender: FDA-Public Use
  Company Number: None

PATIENT
  Age: 69 Year
  Sex: Female
  Weight: 104.4 kg

DRUGS (1)
  1. BAMLANIVIMAB. [Suspect]
     Active Substance: BAMLANIVIMAB
     Indication: COVID-19
     Route: 042
     Dates: start: 20210119, end: 20210119

REACTIONS (5)
  - Headache [None]
  - Nausea [None]
  - Dizziness [None]
  - Gait inability [None]
  - Blood pressure increased [None]

NARRATIVE: CASE EVENT DATE: 20210119
